FAERS Safety Report 9664239 (Version 1)
Quarter: 2013Q4

REPORT INFORMATION
  Report Type: Spontaneous
  Country: US (occurrence: None)
  Receive Date: 20131030
  Receipt Date: 20131030
  Transmission Date: 20140711
  Serious: Yes (Life-Threatening, Hospitalization)
  Sender: FDA-Public Use
  Company Number: None

PATIENT
  Age: 40 Year
  Sex: Female
  Weight: 62.9 kg

DRUGS (1)
  1. HALOPERIDOL LACTATE [Suspect]
     Indication: RESTLESSNESS
     Dosage: 2 MG  ONCE  IV
     Route: 042
     Dates: start: 20131010

REACTIONS (7)
  - Convulsion [None]
  - Respiratory arrest [None]
  - Ventricular fibrillation [None]
  - Sinus tachycardia [None]
  - Drug interaction [None]
  - Electrocardiogram QT prolonged [None]
  - Drug hypersensitivity [None]
